FAERS Safety Report 23409439 (Version 2)
Quarter: 2024Q1

REPORT INFORMATION
  Report Type: Report from Study
  Country: US (occurrence: US)
  Receive Date: 20240117
  Receipt Date: 20240314
  Transmission Date: 20240409
  Serious: Yes (Hospitalization, Other)
  Sender: FDA-Public Use
  Company Number: US-SUN PHARMACEUTICAL INDUSTRIES LTD-2024R1-426615

PATIENT
  Sex: Male

DRUGS (1)
  1. CLOZAPINE [Suspect]
     Active Substance: CLOZAPINE
     Indication: Schizoaffective disorder bipolar type
     Dosage: UNK, BID(100 MG IN THE MORNING AND 225 MG AT BEDTIME)
     Route: 065

REACTIONS (4)
  - Neutropenia [Unknown]
  - Hallucination [Unknown]
  - Paranoia [Unknown]
  - Mania [Unknown]
